FAERS Safety Report 21722642 (Version 1)
Quarter: 2022Q4

REPORT INFORMATION
  Report Type: Report from Study
  Country: DE (occurrence: DE)
  Receive Date: 20221213
  Receipt Date: 20221213
  Transmission Date: 20230113
  Serious: Yes (Life-Threatening)
  Sender: FDA-Public Use
  Company Number: DE-BAYER-2022A166804

PATIENT
  Age: 48 Year
  Sex: Male

DRUGS (4)
  1. ASPIRIN [Suspect]
     Active Substance: ASPIRIN
     Dosage: UNK
  2. GADOLINIUM [Suspect]
     Active Substance: GADOLINIUM
     Dosage: UNK
  3. ALLERGENIC EXTRACT- INSECT VENOM PROTEIN [Suspect]
     Active Substance: ALLERGENIC EXTRACT- INSECT VENOM PROTEIN
     Dosage: UNK
  4. NOSCAPINE [Suspect]
     Active Substance: NOSCAPINE

REACTIONS (7)
  - Flushing [None]
  - Hypersensitivity [None]
  - Nausea [None]
  - Syncope [None]
  - Bronchospasm [None]
  - Anaphylactic reaction [None]
  - Anaphylactic shock [None]
